FAERS Safety Report 5362091-3 (Version None)
Quarter: 2007Q2

REPORT INFORMATION
  Report Type: 
  Country: None (occurrence: None)
  Receive Date: 20070612
  Receipt Date: 20070530
  Transmission Date: 20071010
  Serious: Yes (Death, Other)
  Sender: FDA-Public Use
  Company Number: 2007-01427

PATIENT
  Age: 76 Year
  Sex: Male

DRUGS (6)
  1. VELCADE [Suspect]
     Indication: MULTIPLE MYELOMA
     Dosage: 1.30 MG/M2
     Dates: start: 20070501, end: 20070511
  2. DEXAMETHASONE 0.5MG TAB [Concomitant]
  3. VITAMIN B [Concomitant]
  4. OMEPRAZPOLE                (OMEPRAZOLE) [Concomitant]
  5. FOLIC ACID [Concomitant]
  6. ERYTHROPOIETIN (ERYTHROPOIETIN) [Concomitant]

REACTIONS (3)
  - DIARRHOEA [None]
  - SENSORY DISTURBANCE [None]
  - VOMITING [None]
